FAERS Safety Report 9335584 (Version 3)
Quarter: 2013Q3

REPORT INFORMATION
  Report Type: Spontaneous
  Country: US (occurrence: US)
  Receive Date: 20130605
  Receipt Date: 20130723
  Transmission Date: 20140515
  Serious: Yes (Hospitalization, Other)
  Sender: FDA-Public Use
  Company Number: US-SANOFI-AVENTIS-2013SA055142

PATIENT
  Age: 61 Year
  Sex: Female

DRUGS (4)
  1. LOVENOX [Suspect]
     Indication: THROMBOSIS PROPHYLAXIS
     Dates: start: 199402
  2. LOVENOX [Suspect]
     Indication: THROMBOSIS PROPHYLAXIS
     Dates: start: 20130524, end: 20130528
  3. ENOXAPARIN SODIUM - WINTHROP [Suspect]
     Dosage: STARTED ABOUT 5 DAYS AGO
  4. ENOXAPARIN SODIUM - WINTHROP [Suspect]
     Dosage: STARTED ABOUT 5 DAYS AGO

REACTIONS (5)
  - Gastric disorder [Not Recovered/Not Resolved]
  - Chest pain [Recovered/Resolved]
  - Injection site nodule [Unknown]
  - Malaise [Unknown]
  - Haematoma [Unknown]
